FAERS Safety Report 9230118 (Version 1)
Quarter: 2013Q1

REPORT INFORMATION
  Report Type: Spontaneous
  Country: US (occurrence: None)
  Receive Date: 20121024
  Receipt Date: 20121024
  Transmission Date: 20140127
  Serious: Yes (Other)
  Sender: FDA-Public Use
  Company Number: DSA_47892_2011

PATIENT
  Sex: Male
  Weight: 68.04 kg

DRUGS (3)
  1. WELLBUTRIN XL [Suspect]
     Indication: DEPRESSION
     Route: 048
     Dates: start: 20080516
  2. WELLBUTRIN XL [Suspect]
     Indication: ANXIETY
     Route: 048
     Dates: start: 20080516
  3. SERTRALINE (UNKNOWN) (SERTRALINE) [Concomitant]

REACTIONS (1)
  - Weight decreased [None]
